FAERS Safety Report 11582557 (Version 1)
Quarter: 2015Q4

REPORT INFORMATION
  Report Type: Spontaneous
  Country: US (occurrence: US)
  Receive Date: 20151001
  Receipt Date: 20151001
  Transmission Date: 20160304
  Serious: Yes (Other)
  Sender: FDA-Public Use
  Company Number: US-ROCHE-614271

PATIENT
  Age: 51 Year
  Sex: Female

DRUGS (8)
  1. PEGASYS [Suspect]
     Active Substance: PEGINTERFERON ALFA-2A
     Indication: HEPATITIS C
     Dosage: FORM: PRE-FILLED SYRINGE
     Route: 065
  2. ADVIL [Concomitant]
     Active Substance: IBUPROFEN
     Route: 065
  3. PEGASYS [Suspect]
     Active Substance: PEGINTERFERON ALFA-2A
     Route: 065
  4. HYDROCODONE [Concomitant]
     Active Substance: HYDROCODONE
     Route: 065
  5. COPEGUS [Suspect]
     Active Substance: RIBAVIRIN
     Route: 065
  6. COPEGUS [Suspect]
     Active Substance: RIBAVIRIN
     Route: 065
  7. COPEGUS [Suspect]
     Active Substance: RIBAVIRIN
     Indication: HEPATITIS C
     Route: 065
  8. PROCRIT [Concomitant]
     Active Substance: ERYTHROPOIETIN
     Route: 065

REACTIONS (10)
  - Myalgia [Recovering/Resolving]
  - Injection site haemorrhage [Recovered/Resolved]
  - Pyrexia [Recovering/Resolving]
  - Injection site pain [Unknown]
  - Injection site swelling [Recovering/Resolving]
  - White blood cell count decreased [Not Recovered/Not Resolved]
  - Hyperhidrosis [Not Recovered/Not Resolved]
  - Influenza like illness [Recovering/Resolving]
  - Weight decreased [Unknown]
  - Chills [Recovering/Resolving]

NARRATIVE: CASE EVENT DATE: 200804
